FAERS Safety Report 15822310 (Version 1)
Quarter: 2019Q1

REPORT INFORMATION
  Report Type: Spontaneous
  Country: NL (occurrence: NL)
  Receive Date: 20190114
  Receipt Date: 20190114
  Transmission Date: 20190417
  Serious: Yes (Other)
  Sender: FDA-Public Use
  Company Number: NL-PFIZER INC-2019011196

PATIENT
  Age: 43 Year
  Sex: Male
  Weight: 92 kg

DRUGS (1)
  1. ATORVASTATIN CALCIUM. [Suspect]
     Active Substance: ATORVASTATIN CALCIUM
     Indication: BLOOD CHOLESTEROL INCREASED
     Dosage: UNK
     Dates: start: 2015

REACTIONS (8)
  - Deafness [Unknown]
  - Insomnia [Unknown]
  - Alopecia [Unknown]
  - Anxiety [Unknown]
  - Flatulence [Unknown]
  - Abnormal behaviour [Unknown]
  - Adjustment disorder with depressed mood [Unknown]
  - Nightmare [Unknown]

NARRATIVE: CASE EVENT DATE: 20160101
